FAERS Safety Report 7833426-4 (Version None)
Quarter: 2011Q4

REPORT INFORMATION
  Report Type: 
  Country: None (occurrence: None)
  Receive Date: 20111024
  Receipt Date: 20111013
  Transmission Date: 20120403
  Serious: Yes (Other)
  Sender: FDA-Public Use
  Company Number: US-ELI_LILLY_AND_COMPANY-US201110004263

PATIENT
  Sex: Female

DRUGS (1)
  1. FORTEO [Suspect]
     Dosage: 20 UG, QD
     Dates: start: 20100101

REACTIONS (5)
  - EYE INJURY [None]
  - ARTHRALGIA [None]
  - FALL [None]
  - LOSS OF CONSCIOUSNESS [None]
  - NECK PAIN [None]
